FAERS Safety Report 6793156-7 (Version None)
Quarter: 2010Q2

REPORT INFORMATION
  Report Type: 
  Country: None (occurrence: None)
  Receive Date: 20100624
  Receipt Date: 20100412
  Transmission Date: 20101027
  Serious: Yes (Other)
  Sender: FDA-Public Use
  Company Number: US-MYLANLABS-2009S1010441

PATIENT
  Age: 69 Year
  Sex: Male

DRUGS (12)
  1. CLOZAPINE [Suspect]
     Indication: SCHIZOPHRENIA
     Route: 048
     Dates: end: 20091001
  2. CLOZAPINE [Suspect]
     Route: 048
     Dates: start: 20091006, end: 20091001
  3. SEROQUEL [Concomitant]
  4. KLONOPIN [Concomitant]
  5. PLAVIX [Concomitant]
  6. CELEXA [Concomitant]
  7. NORVASC [Concomitant]
  8. LASIX [Concomitant]
  9. LOPRESSOR [Concomitant]
  10. SINEMET [Concomitant]
  11. POTASSIUM CHLORIDE [Concomitant]
  12. VITAMIN D [Concomitant]
     Dosage: 50,000 UNITS EVERY WEEK

REACTIONS (2)
  - GRANULOCYTOPENIA [None]
  - LEUKOPENIA [None]
